FAERS Safety Report 15454481 (Version 4)
Quarter: 2018Q4

REPORT INFORMATION
  Report Type: Spontaneous
  Country: US (occurrence: US)
  Receive Date: 20181002
  Receipt Date: 20181112
  Transmission Date: 20190204
  Serious: Yes (Other)
  Sender: FDA-Public Use
  Company Number: US-PFIZER INC-2018366474

PATIENT
  Age: 57 Year
  Sex: Male
  Weight: 75 kg

DRUGS (4)
  1. HYDROCORTISONE. [Concomitant]
     Active Substance: HYDROCORTISONE
     Indication: ADRENAL GLAND OPERATION
     Dosage: 10 MG, 1X/DAY
     Route: 048
  2. TESTOSTERONE. [Concomitant]
     Active Substance: TESTOSTERONE
     Indication: HYPOTHALAMO-PITUITARY DISORDER
     Dosage: 2.5 MG, DAILY
     Route: 061
  3. LEVOTHYROXINE. [Concomitant]
     Active Substance: LEVOTHYROXINE
     Indication: THYROID DISORDER
     Dosage: 150 UG, 1X/DAY
     Route: 048
  4. GENOTROPIN [Suspect]
     Active Substance: SOMATROPIN
     Indication: HYPOTHALAMO-PITUITARY DISORDER
     Dosage: 0.1 MG, ONCE A DAY
     Route: 058

REACTIONS (6)
  - Neoplasm [Unknown]
  - Sluggishness [Not Recovered/Not Resolved]
  - Somnolence [Unknown]
  - Brain neoplasm [Unknown]
  - Fatigue [Not Recovered/Not Resolved]
  - Seizure [Unknown]

NARRATIVE: CASE EVENT DATE: 20180613
